FAERS Safety Report 4932127-X (Version None)
Quarter: 2006Q1

REPORT INFORMATION
  Report Type: 
  Country: None (occurrence: None)
  Receive Date: 20060303
  Receipt Date: 20060221
  Transmission Date: 20060701
  Serious: Yes (Other)
  Sender: FDA-Public Use
  Company Number: US-ROCHE-437693

PATIENT
  Age: 35 Year
  Sex: Female
  Weight: 107 kg

DRUGS (3)
  1. PEGASYS [Suspect]
     Indication: HEPATITIS C
     Route: 058
     Dates: start: 20040905, end: 20041015
  2. COPEGUS [Suspect]
     Indication: HEPATITIS C
     Route: 048
     Dates: start: 20040905, end: 20041015
  3. PREMARIN [Concomitant]
     Indication: HORMONE REPLACEMENT THERAPY
     Route: 048

REACTIONS (9)
  - ALOPECIA [None]
  - ANGER [None]
  - DEHYDRATION [None]
  - DYSPEPSIA [None]
  - INFLUENZA LIKE ILLNESS [None]
  - LIVER DISORDER [None]
  - POST PROCEDURAL HAEMORRHAGE [None]
  - SCAR [None]
  - VOMITING [None]
